FAERS Safety Report 4529306-2 (Version None)
Quarter: 2004Q4

REPORT INFORMATION
  Report Type: 
  Country: None (occurrence: None)
  Receive Date: 20041214
  Receipt Date: 20041014
  Transmission Date: 20050328
  Serious: Yes (Other)
  Sender: FDA-Public Use
  Company Number: 2004082246

PATIENT
  Age: 32 Year
  Sex: Male

DRUGS (5)
  1. DIFLUCAN [Suspect]
     Indication: COCCIDIOIDOMYCOSIS
     Dosage: 400 MG (1 D), ORAL
     Route: 048
     Dates: start: 20040607, end: 20040101
  2. ITRACONAZOLE [Suspect]
     Indication: COCCIDIOIDOMYCOSIS
     Dosage: ORAL
     Route: 048
     Dates: start: 20040101, end: 20040801
  3. AMPHOTERICIN B [Suspect]
     Indication: COCCIDIOIDOMYCOSIS
     Dosage: INTRAVENOUS
     Route: 042
     Dates: start: 20040801, end: 20041001
  4. CEFAZOLIN [Concomitant]
  5. DRUGS FOR TREATMENT OF PEPTIC ULCER (DRUGS FOR TREATMENT OF PEPTIC ULC [Concomitant]

REACTIONS (4)
  - CONDITION AGGRAVATED [None]
  - HAEMOPTYSIS [None]
  - RENAL IMPAIRMENT [None]
  - RESPIRATORY TRACT HAEMORRHAGE [None]
